FAERS Safety Report 9681583 (Version 3)
Quarter: 2014Q1

REPORT INFORMATION
  Report Type: Spontaneous
  Country: IT (occurrence: IT)
  Receive Date: 20131111
  Receipt Date: 20140121
  Transmission Date: 20141002
  Serious: Yes (Hospitalization)
  Sender: FDA-Public Use
  Company Number: IT-PFIZER INC-2013318446

PATIENT
  Age: 86 Year
  Sex: Female

DRUGS (5)
  1. TORVAST [Suspect]
     Dosage: 40 MG, DAILY
     Route: 048
     Dates: start: 20131001, end: 20131008
  2. METFORMIN HCL [Suspect]
     Dosage: 3000 MG, DAILY
     Route: 048
  3. PLAVIX [Suspect]
     Dosage: 75 MG, DAILY
     Route: 048
  4. LEVOPRAID [Concomitant]
     Dosage: 37.5 MG, UNK
     Route: 042
     Dates: start: 20131002, end: 20131008
  5. FOSFOMYCINA RATIOPHARM [Concomitant]
     Dosage: 1 DF, UNK
     Route: 048
     Dates: start: 20131006, end: 20131007

REACTIONS (3)
  - Hepatic enzyme increased [Recovered/Resolved]
  - Hepatic failure [Recovered/Resolved]
  - Intracardiac thrombus [Recovered/Resolved]
